FAERS Safety Report 23054239 (Version 3)
Quarter: 2024Q3

REPORT INFORMATION
  Report Type: Spontaneous
  Country: US (occurrence: US)
  Receive Date: 20231011
  Receipt Date: 20240711
  Transmission Date: 20241017
  Serious: No
  Sender: SANOFI AVENTIS
  Company Number: US-SA-SAC20231005000684

PATIENT
  Age: 7 Year
  Sex: Female

DRUGS (3)
  1. DUPIXENT [Suspect]
     Active Substance: DUPILUMAB
     Indication: Dermatitis atopic
     Dosage: 200 MG, QOW
     Route: 058
  2. TRIAMCINOLONE [Concomitant]
     Active Substance: TRIAMCINOLONE
     Dosage: UNK
  3. CLARITIN [Concomitant]
     Active Substance: LORATADINE
     Dosage: UNK

REACTIONS (10)
  - Sleep disorder due to a general medical condition [Unknown]
  - Skin swelling [Unknown]
  - Skin exfoliation [Unknown]
  - Pruritus [Unknown]
  - Rash [Unknown]
  - Dermatitis atopic [Unknown]
  - Dry skin [Unknown]
  - Skin fissures [Unknown]
  - Scratch [Unknown]
  - Scab [Unknown]

NARRATIVE: CASE EVENT DATE: 20230101
